FAERS Safety Report 9181307 (Version 2)
Quarter: 2013Q2

REPORT INFORMATION
  Report Type: Spontaneous
  Country: US (occurrence: US)
  Receive Date: 20130322
  Receipt Date: 20130510
  Transmission Date: 20140414
  Serious: Yes (Hospitalization, Other)
  Sender: FDA-Public Use
  Company Number: US-PFIZER INC-2013092826

PATIENT
  Age: 46 Year
  Sex: Female

DRUGS (8)
  1. CHANTIX [Suspect]
     Dosage: UNK
     Dates: start: 20080408, end: 20090302
  2. O-CAL-D [Concomitant]
     Dosage: 500 MG, UNK
     Dates: start: 20090219
  3. ALPRAZOLAM [Concomitant]
     Dosage: 1 MG, UNK
     Dates: start: 20090219
  4. LOVASTATIN [Concomitant]
     Dosage: 40 MG, UNK
     Dates: start: 20090220
  5. DOCUSATE SODIUM [Concomitant]
     Dosage: 100 MG, UNK
     Dates: start: 20090220
  6. PREMARIN [Concomitant]
     Dosage: 1.25 MG, UNK
     Dates: start: 20090220
  7. HYDROXYZINE [Concomitant]
     Dosage: 25 MG, UNK
     Dates: start: 20090223
  8. SENNA-S [Concomitant]
     Dosage: UNK
     Dates: start: 20090223

REACTIONS (1)
  - Suicidal ideation [Recovered/Resolved]
